FAERS Safety Report 5939435-4 (Version None)
Quarter: 2008Q4

REPORT INFORMATION
  Report Type: 
  Country: None (occurrence: None)
  Receive Date: 20081029
  Receipt Date: 20081024
  Transmission Date: 20090506
  Serious: Yes (Hospitalization)
  Sender: FDA-Public Use
  Company Number: SP02098

PATIENT
  Age: 89 Year
  Sex: Female

DRUGS (11)
  1. VISICOL [Suspect]
     Indication: ENDOSCOPY
     Dosage: 50 GM, ORAL
     Route: 048
     Dates: start: 20080818, end: 20080818
  2. ASPIRIN [Concomitant]
  3. FLUTAZOLAM [Concomitant]
  4. DOXAZOSIN MESYLATE [Concomitant]
  5. ALFACALCIDOL [Concomitant]
  6. FAMOTIDINE [Concomitant]
  7. CANDESARTAN CILEXETIL [Concomitant]
  8. NIFEDIPINE [Concomitant]
  9. MAGNESIUM OXIDE [Concomitant]
  10. FERROUS CITRATE [Concomitant]
  11. ZOLPIDEM TARTRATE [Concomitant]

REACTIONS (3)
  - CARDIAC FAILURE [None]
  - HYPOKALAEMIA [None]
  - OEDEMA PERIPHERAL [None]
